FAERS Safety Report 9401034 (Version 2)
Quarter: 2013Q4

REPORT INFORMATION
  Report Type: Spontaneous
  Country: FR (occurrence: FR)
  Receive Date: 20130715
  Receipt Date: 20131017
  Transmission Date: 20140711
  Serious: Yes (Hospitalization)
  Sender: FDA-Public Use
  Company Number: PHHY2013FR073934

PATIENT
  Age: 87 Year
  Sex: Female

DRUGS (7)
  1. VOLTARENE [Suspect]
     Indication: BACK PAIN
     Route: 048
  2. XARELTO [Concomitant]
     Dosage: 20 MG, QD
     Route: 048
     Dates: start: 201302, end: 20130617
  3. LASILIX [Concomitant]
     Dates: end: 20130617
  4. ACUPAN [Concomitant]
     Dosage: 80 MG, QD
     Route: 042
     Dates: start: 20130615, end: 20130617
  5. CORDARONE [Concomitant]
     Dosage: 200 MG, QD
     Route: 048
     Dates: start: 201302
  6. LEVOTHYROX [Concomitant]
     Dosage: 80 UG, QD
     Route: 048
  7. MIANSERINE [Concomitant]
     Dosage: 10 MG, QD
     Route: 048

REACTIONS (1)
  - Renal failure acute [Recovered/Resolved]
